FAERS Safety Report 5633779-1 (Version None)
Quarter: 2008Q1

REPORT INFORMATION
  Report Type: 
  Country: None (occurrence: None)
  Receive Date: 20080131
  Receipt Date: 20070322
  Transmission Date: 20080703
  Serious: Yes (Other)
  Sender: FDA-Public Use
  Company Number: 152742USA

PATIENT
  Sex: Female
  Weight: 116.5 kg

DRUGS (5)
  1. COPAXONE [Suspect]
     Indication: MULTIPLE SCLEROSIS
     Dosage: 20 MG (20 MG,1 IN 1 D),SUBCUTANEOUS
     Route: 058
     Dates: start: 20020101
  2. TOPIRAMATE [Concomitant]
  3. GABAPENTIN [Concomitant]
  4. CELECOXIB [Concomitant]
  5. METOPROLOL SUCCINATE [Concomitant]

REACTIONS (2)
  - IRITIS [None]
  - UVEITIS [None]
